FAERS Safety Report 4922846-3 (Version None)
Quarter: 2006Q1

REPORT INFORMATION
  Report Type: 
  Country: None (occurrence: None)
  Receive Date: 20060224
  Receipt Date: 20051004
  Transmission Date: 20060701
  Serious: Yes (Hospitalization, Other)
  Sender: FDA-Public Use
  Company Number: US-MERCK-0510USA02430

PATIENT
  Age: 39 Year
  Sex: Female
  Weight: 100 kg

DRUGS (3)
  1. VIOXX [Suspect]
     Indication: ARTHRITIS
     Route: 048
  2. LORTAB [Concomitant]
     Indication: PAIN
     Route: 065
  3. ULTRAM [Concomitant]
     Route: 065

REACTIONS (10)
  - ABDOMINAL PAIN [None]
  - ANOREXIA [None]
  - APPETITE DISORDER [None]
  - BASILAR MIGRAINE [None]
  - CEREBROVASCULAR ACCIDENT [None]
  - CONSTIPATION [None]
  - DYSPHAGIA [None]
  - HYPERTENSION [None]
  - PRURITUS [None]
  - VERTEBROBASILAR INSUFFICIENCY [None]
